FAERS Safety Report 5028985-3 (Version None)
Quarter: 2006Q2

REPORT INFORMATION
  Report Type: 
  Country: None (occurrence: None)
  Receive Date: 20060619
  Receipt Date: 20060519
  Transmission Date: 20061013
  Serious: Yes (Death)
  Sender: FDA-Public Use
  Company Number: ZA-SANOFI-SYNTHELABO-A01200603860

PATIENT
  Age: 83 Year
  Sex: Male
  Weight: 80 kg

DRUGS (1)
  1. PLAVIX [Suspect]
     Indication: CORONARY ARTERIAL STENT INSERTION
     Route: 048
     Dates: start: 20060505, end: 20060527

REACTIONS (4)
  - CONDITION AGGRAVATED [None]
  - HEPATIC FAILURE [None]
  - HEPATITIS C [None]
  - RASH [None]
